FAERS Safety Report 6781420-7 (Version None)
Quarter: 2010Q2

REPORT INFORMATION
  Report Type: 
  Country: None (occurrence: None)
  Receive Date: 20100617
  Receipt Date: 20100617
  Transmission Date: 20101027
  Serious: Yes (Other)
  Sender: FDA-Public Use
  Company Number: None

PATIENT
  Sex: Male
  Weight: 24.4942 kg

DRUGS (1)
  1. ADDERALL 10 [Suspect]
     Indication: ATTENTION DEFICIT/HYPERACTIVITY DISORDER
     Dosage: 10MG 1 A DAY
     Dates: start: 20100425, end: 20100519

REACTIONS (4)
  - EYE ROLLING [None]
  - MALAISE [None]
  - PARANOIA [None]
  - TREMOR [None]
